FAERS Safety Report 16117806 (Version 1)
Quarter: 2019Q1

REPORT INFORMATION
  Report Type: Spontaneous
  Country: US (occurrence: US)
  Receive Date: 20190326
  Receipt Date: 20190326
  Transmission Date: 20190418
  Serious: Yes (Other)
  Sender: FDA-Public Use
  Company Number: US-UNITED THERAPEUTICS-UNT-2019-005165

PATIENT
  Age: 51 Year
  Sex: Male
  Weight: 78.91 kg

DRUGS (1)
  1. REMODULIN [Suspect]
     Active Substance: TREPROSTINIL
     Indication: PULMONARY ARTERIAL HYPERTENSION
     Dosage: 0.0506 ?G/KG, CONTINUING
     Route: 058
     Dates: start: 20131223

REACTIONS (5)
  - Dyspnoea [Unknown]
  - Feeling abnormal [Unknown]
  - Arrhythmia [Unknown]
  - Oxygen saturation decreased [Unknown]
  - Headache [Unknown]

NARRATIVE: CASE EVENT DATE: 201903
